FAERS Safety Report 10555582 (Version 2)
Quarter: 2014Q4

REPORT INFORMATION
  Report Type: Spontaneous
  Country: US (occurrence: US)
  Receive Date: 20141030
  Receipt Date: 20141110
  Transmission Date: 20150529
  Serious: Yes (Hospitalization)
  Sender: FDA-Public Use
  Company Number: US-009507513-1410USA011295

PATIENT
  Sex: Female

DRUGS (1)
  1. TEMODAR [Suspect]
     Active Substance: TEMOZOLOMIDE
     Indication: ASTROCYTOMA
     Dosage: 75 MG/M2, FREQUENCY UNSPECIFIED
     Route: 048
     Dates: start: 2014

REACTIONS (3)
  - Drug administration error [Unknown]
  - Dysphagia [Not Recovered/Not Resolved]
  - Astrocytoma [Unknown]

NARRATIVE: CASE EVENT DATE: 2014
